FAERS Safety Report 24463085 (Version 1)
Quarter: 2024Q4

REPORT INFORMATION
  Report Type: Report from Study
  Country: US (occurrence: US)
  Receive Date: 20241018
  Receipt Date: 20241018
  Transmission Date: 20250115
  Serious: No
  Sender: ROCHE
  Company Number: US-ROCHE-2752664

PATIENT
  Age: 62 Year
  Sex: Female

DRUGS (2)
  1. XOLAIR [Suspect]
     Active Substance: OMALIZUMAB
     Indication: Idiopathic urticaria
     Dosage: PRE-FILLED SYRINGE, ONGOING : UNKNOWN, ANTICIPATED DATE OF TREATMENT: 30/NOV/2020?LAST INJECTION DAT
     Route: 058
     Dates: start: 2021, end: 2021
  2. XOLAIR [Suspect]
     Active Substance: OMALIZUMAB
     Indication: Urticaria

REACTIONS (4)
  - Hypersensitivity [Not Recovered/Not Resolved]
  - Mouth swelling [Not Recovered/Not Resolved]
  - Urticaria [Not Recovered/Not Resolved]
  - Swelling [Not Recovered/Not Resolved]

NARRATIVE: CASE EVENT DATE: 20230701
